FAERS Safety Report 17269073 (Version 1)
Quarter: 2020Q1

REPORT INFORMATION
  Report Type: Report from Study
  Country: JP (occurrence: JP)
  Receive Date: 20200114
  Receipt Date: 20200114
  Transmission Date: 20200409
  Serious: Yes (Life-Threatening, Hospitalization, Disabling, Other)
  Sender: FDA-Public Use
  Company Number: JP-SAKK-BA201600299001

PATIENT
  Age: 17 Year
  Sex: Female

DRUGS (9)
  1. RITUXAN [Concomitant]
     Active Substance: RITUXIMAB
     Indication: ACUTE LYMPHOCYTIC LEUKAEMIA RECURRENT
     Dosage: 375 MG/M2, QW
     Route: 042
     Dates: start: 20140909, end: 20140913
  2. CLOFARABINE. [Suspect]
     Active Substance: CLOFARABINE
     Indication: ACUTE LYMPHOCYTIC LEUKAEMIA RECURRENT
     Dosage: 25 MG/M2, QD
     Route: 065
     Dates: start: 20140909, end: 20140911
  3. CLOFARABINE. [Suspect]
     Active Substance: CLOFARABINE
     Dosage: 25 MG/M2, QD
     Route: 065
     Dates: start: 20141017, end: 20141021
  4. CLOFARABINE. [Suspect]
     Active Substance: CLOFARABINE
     Dosage: 25 MG/M2, QD
     Route: 065
     Dates: start: 20140913, end: 20140913
  5. CYCLOPHOSPHAMIDE. [Suspect]
     Active Substance: CYCLOPHOSPHAMIDE
     Indication: ACUTE LYMPHOCYTIC LEUKAEMIA RECURRENT
     Dosage: 520 MG, QD
     Route: 042
     Dates: start: 20140909, end: 20140913
  6. RITUXAN [Concomitant]
     Active Substance: RITUXIMAB
     Dosage: 375 MG/M2, QW
     Route: 042
     Dates: start: 20141015, end: 20141021
  7. ETOPOSIDE. [Suspect]
     Active Substance: ETOPOSIDE
     Indication: ACUTE LYMPHOCYTIC LEUKAEMIA RECURRENT
     Dosage: 150 MG/M2, QD
     Route: 042
     Dates: start: 20140909, end: 20140913
  8. ETOPOSIDE. [Suspect]
     Active Substance: ETOPOSIDE
     Dosage: 150 MG/M2, QD
     Route: 042
     Dates: start: 20141015, end: 20141021
  9. CYCLOPHOSPHAMIDE. [Suspect]
     Active Substance: CYCLOPHOSPHAMIDE
     Dosage: 520 MG, QD
     Route: 042
     Dates: start: 20141015, end: 20141021

REACTIONS (12)
  - Respiratory arrest [Unknown]
  - Liver disorder [Recovered/Resolved]
  - Herpes zoster [Recovered/Resolved]
  - Cytomegalovirus infection [Recovered/Resolved]
  - Epilepsy [Recovered/Resolved]
  - Pleural effusion [Recovered/Resolved]
  - Acute respiratory distress syndrome [Recovered/Resolved]
  - Lymphopenia [Recovered/Resolved]
  - Pancreatitis acute [Recovered/Resolved]
  - Staphylococcal sepsis [Recovered/Resolved]
  - Bone marrow failure [Recovered/Resolved]
  - Platelet count decreased [Recovered/Resolved]

NARRATIVE: CASE EVENT DATE: 20140915
